FAERS Safety Report 4330189-4 (Version None)
Quarter: 2004Q1

REPORT INFORMATION
  Report Type: 
  Country: None (occurrence: None)
  Receive Date: 20040329
  Receipt Date: 20040312
  Transmission Date: 20041129
  Serious: Yes (Hospitalization)
  Sender: FDA-Public Use
  Company Number: US070336

PATIENT
  Sex: Male

DRUGS (1)
  1. ENBREL [Suspect]

REACTIONS (1)
  - MYOCARDIAL INFARCTION [None]
